FAERS Safety Report 8926368 (Version 3)
Quarter: 2013Q2

REPORT INFORMATION
  Report Type: Report from Study
  Country: US (occurrence: US)
  Receive Date: 20121126
  Receipt Date: 20130426
  Transmission Date: 20140414
  Serious: Yes (Hospitalization, Other)
  Sender: FDA-Public Use
  Company Number: PHEH2012US022914

PATIENT
  Age: 68 Year
  Sex: Female

DRUGS (4)
  1. GILENYA [Suspect]
     Indication: MULTIPLE SCLEROSIS
     Dosage: QD
     Route: 048
     Dates: start: 20120809
  2. ANTIBIOTICS [Concomitant]
  3. ANTIHYPERTENSIVE DRUGS [Concomitant]
     Indication: HYPERTENSION
  4. ASA [Concomitant]

REACTIONS (16)
  - Renal impairment [Recovered/Resolved]
  - Glomerular filtration rate decreased [Unknown]
  - Blood creatinine increased [Unknown]
  - Hydronephrosis [Unknown]
  - Myocardial infarction [Recovered/Resolved]
  - Blood creatine phosphokinase increased [Unknown]
  - Troponin increased [Unknown]
  - C-reactive protein increased [Unknown]
  - Dyspnoea [Recovered/Resolved]
  - Confusional state [Unknown]
  - Depressed level of consciousness [Unknown]
  - Alanine aminotransferase increased [Unknown]
  - Aspartate aminotransferase increased [Unknown]
  - Flank pain [Unknown]
  - Lethargy [Unknown]
  - Infection [Unknown]
